FAERS Safety Report 10710351 (Version 1)
Quarter: 2015Q1

REPORT INFORMATION
  Report Type: Spontaneous
  Country: US (occurrence: None)
  Receive Date: 20150112
  Receipt Date: 20150112
  Transmission Date: 20150721
  Serious: Yes (Other)
  Sender: FDA-Public Use
  Company Number: KAD201501-000016

PATIENT
  Age: 73 Year
  Sex: Male
  Weight: 79 kg

DRUGS (8)
  1. PEGINTERFERON ALFA-2A [Suspect]
     Active Substance: PEGINTERFERON ALFA-2A
     Indication: HEPATITIS C
     Dates: start: 20120801, end: 20130508
  2. WARFARIN (WARFARIN) [Suspect]
     Active Substance: WARFARIN
     Indication: PULMONARY EMBOLISM
     Dates: start: 20120711
  3. CYANOCOBALAMIN. [Concomitant]
     Active Substance: CYANOCOBALAMIN
  4. WARFARIN (WARFARIN) [Suspect]
     Active Substance: WARFARIN
     Indication: DEEP VEIN THROMBOSIS
     Dates: start: 20120711
  5. BOCEPREVIR [Suspect]
     Active Substance: BOCEPREVIR
     Indication: HEPATITIS C
     Dates: start: 20120831
  6. RIBAVIRIN (RIBAVIRIN) [Suspect]
     Active Substance: RIBAVIRIN
     Indication: HEPATITIS C
     Dates: start: 20120801
  7. FERROUS SULFATE [Concomitant]
     Active Substance: FERROUS SULFATE\FERROUS SULFATE, DRIED
  8. EPOETIN ALFA [Concomitant]
     Active Substance: ERYTHROPOIETIN

REACTIONS (8)
  - International normalised ratio fluctuation [None]
  - Subcutaneous abscess [None]
  - Thrombocytopenia [None]
  - Drug interaction [None]
  - Bacteraemia [None]
  - Pelvic abscess [None]
  - Anaemia [None]
  - Urinary tract infection [None]
